FAERS Safety Report 9215311 (Version 2)
Quarter: 2013Q2

REPORT INFORMATION
  Report Type: Spontaneous
  Country: US (occurrence: US)
  Receive Date: 20130405
  Receipt Date: 20130508
  Transmission Date: 20140414
  Serious: Yes (Hospitalization)
  Sender: FDA-Public Use
  Company Number: US-GILEAD-2013-0072921

PATIENT
  Age: 14 Year
  Sex: Female

DRUGS (4)
  1. LETAIRIS [Suspect]
     Indication: COR PULMONALE
     Dosage: 10 MG, QD
     Dates: start: 20121206
  2. LETAIRIS [Suspect]
     Indication: CORONARY ARTERY DISEASE
  3. LETAIRIS [Suspect]
     Indication: TRISOMY 21
  4. LETAIRIS [Suspect]
     Indication: PULMONARY HYPOPLASIA

REACTIONS (2)
  - Pneumonia [Not Recovered/Not Resolved]
  - Atelectasis [Not Recovered/Not Resolved]
